FAERS Safety Report 20282923 (Version 1)
Quarter: 2022Q1

REPORT INFORMATION
  Report Type: Spontaneous
  Country: US (occurrence: None)
  Receive Date: 20220101
  Receipt Date: 20220101
  Transmission Date: 20220423
  Serious: Yes (Hospitalization)
  Sender: FDA-Public Use
  Company Number: None

PATIENT
  Age: 68 Year
  Sex: Male
  Weight: 97 kg

DRUGS (1)
  1. SECUKINUMAB [Suspect]
     Active Substance: SECUKINUMAB
     Indication: Psoriasis
     Route: 058
     Dates: start: 20170101, end: 20200326

REACTIONS (7)
  - Pain in extremity [None]
  - Back pain [None]
  - Peripheral swelling [None]
  - Oedema peripheral [None]
  - Erythema [None]
  - Cellulitis [None]
  - Rash [None]

NARRATIVE: CASE EVENT DATE: 20200402
